FAERS Safety Report 17430355 (Version 2)
Quarter: 2020Q2

REPORT INFORMATION
  Report Type: Spontaneous
  Country: US (occurrence: US)
  Receive Date: 20200218
  Receipt Date: 20200507
  Transmission Date: 20200713
  Serious: Yes (Other)
  Sender: FDA-Public Use
  Company Number: US-PFIZER INC-2020069988

PATIENT
  Age: 75 Year
  Sex: Female
  Weight: 80.73 kg

DRUGS (2)
  1. GABAPENTIN. [Suspect]
     Active Substance: GABAPENTIN
     Indication: POSTOPERATIVE ANALGESIA
     Dosage: UNK
     Dates: start: 20200211
  2. TYLENOL [Concomitant]
     Active Substance: ACETAMINOPHEN
     Dosage: UNK

REACTIONS (10)
  - Product use in unapproved indication [Unknown]
  - Anaphylactic reaction [Not Recovered/Not Resolved]
  - Speech disorder [Unknown]
  - Erythema of eyelid [Unknown]
  - Muscle spasms [Unknown]
  - Feeling abnormal [Unknown]
  - Micturition urgency [Unknown]
  - Erythema [Unknown]
  - Off label use [Unknown]
  - Tremor [Unknown]

NARRATIVE: CASE EVENT DATE: 20200211
